FAERS Safety Report 12864515 (Version 1)
Quarter: 2016Q4

REPORT INFORMATION
  Report Type: Spontaneous
  Country: US (occurrence: US)
  Receive Date: 20161018
  Receipt Date: 20161018
  Transmission Date: 20170207
  Serious: Yes (Hospitalization)
  Sender: FDA-Public Use
  Company Number: None

PATIENT
  Age: 50 Year
  Sex: Female

DRUGS (3)
  1. FLUTICASONE [Concomitant]
     Active Substance: FLUTICASONE\FLUTICASONE PROPIONATE
  2. ACETAMINOPHEN. [Suspect]
     Active Substance: ACETAMINOPHEN
     Indication: HEADACHE
     Route: 048
     Dates: start: 20160820, end: 20160821
  3. MESALAMINE. [Concomitant]
     Active Substance: MESALAMINE

REACTIONS (3)
  - Toxicity to various agents [None]
  - Headache [None]
  - Hepatic enzyme increased [None]

NARRATIVE: CASE EVENT DATE: 20160825
